FAERS Safety Report 4458041-4 (Version None)
Quarter: 2004Q3

REPORT INFORMATION
  Report Type: 
  Country: None (occurrence: None)
  Receive Date: 20040924
  Receipt Date: 20040913
  Transmission Date: 20050211
  Serious: Yes (Hospitalization, Other)
  Sender: FDA-Public Use
  Company Number: BE-JNJFOC-20040707408

PATIENT
  Age: 19 Month
  Sex: Male

DRUGS (2)
  1. PROPULSID [Suspect]
     Route: 049
     Dates: start: 20031009, end: 20040416
  2. ZANTAC [Concomitant]
     Route: 049

REACTIONS (2)
  - DRUG INEFFECTIVE [None]
  - GASTROSTOMY [None]
